FAERS Safety Report 14435746 (Version 1)
Quarter: 2018Q1

REPORT INFORMATION
  Report Type: Spontaneous
  Country: US (occurrence: US)
  Receive Date: 20180125
  Receipt Date: 20180125
  Transmission Date: 20180509
  Serious: No
  Sender: FDA-Public Use
  Company Number: US-UNITED THERAPEUTICS-UNT-2017-008242

PATIENT
  Age: 1 Year
  Sex: Female
  Weight: 9.7 kg

DRUGS (2)
  1. REMODULIN [Suspect]
     Active Substance: TREPROSTINIL
     Indication: PULMONARY HYPERTENSION
     Dosage: 0.05833 ?G/KG, CONTINUING
     Route: 058
     Dates: start: 20160926
  2. REVATIO [Concomitant]
     Active Substance: SILDENAFIL CITRATE
     Indication: PRODUCT USED FOR UNKNOWN INDICATION

REACTIONS (6)
  - Dermatitis contact [Recovered/Resolved]
  - Infusion site erythema [Unknown]
  - Infusion site rash [Unknown]
  - Infusion site extravasation [Recovered/Resolved]
  - Agitation [Recovered/Resolved]
  - Infusion site haemorrhage [Recovered/Resolved]

NARRATIVE: CASE EVENT DATE: 20170604
